FAERS Safety Report 13736723 (Version 1)
Quarter: 2017Q3

REPORT INFORMATION
  Report Type: Spontaneous
  Country: US (occurrence: US)
  Receive Date: 20170710
  Receipt Date: 20170710
  Transmission Date: 20171127
  Serious: Yes (Other)
  Sender: FDA-Public Use
  Company Number: US-PFIZER INC-2017295623

PATIENT
  Age: 62 Year
  Sex: Female
  Weight: 80 kg

DRUGS (10)
  1. NEXIUM 24HR [Suspect]
     Active Substance: ESOMEPRAZOLE MAGNESIUM
     Indication: FLATULENCE
  2. PANTOPRAZOLE [Suspect]
     Active Substance: PANTOPRAZOLE
     Indication: ULCER
     Dosage: 40 MG, 1X/DAY
     Route: 048
     Dates: start: 2009
  3. NEXIUM 24HR [Suspect]
     Active Substance: ESOMEPRAZOLE MAGNESIUM
     Indication: ERUCTATION
  4. LISINOPRIL HCTZ [Concomitant]
     Active Substance: HYDROCHLOROTHIAZIDE\LISINOPRIL
     Indication: BLOOD PRESSURE MEASUREMENT
     Dosage: [HYDROCHLOROTHIAZIDE 12.5 MG]/[ LISINOPRIL 20 MG, 2X/DAY
     Route: 048
     Dates: start: 2009
  5. NEXIUM 24HR [Suspect]
     Active Substance: ESOMEPRAZOLE MAGNESIUM
     Indication: ERUCTATION
     Dosage: 1 DF, 1X/DAY
     Route: 048
     Dates: end: 201706
  6. ALLEGRA [Concomitant]
     Active Substance: FEXOFENADINE HYDROCHLORIDE
     Indication: ALLERGIC SINUSITIS
     Dosage: 180 MG, 1X/DAY
  7. NEXIUM 24HR [Suspect]
     Active Substance: ESOMEPRAZOLE MAGNESIUM
     Indication: FLATULENCE
  8. NEXIUM 24HR [Suspect]
     Active Substance: ESOMEPRAZOLE MAGNESIUM
     Indication: GASTROOESOPHAGEAL REFLUX DISEASE
  9. NEXIUM 24HR [Suspect]
     Active Substance: ESOMEPRAZOLE MAGNESIUM
     Indication: GASTROOESOPHAGEAL REFLUX DISEASE
  10. FLUOXETINE HCL [Concomitant]
     Active Substance: FLUOXETINE HYDROCHLORIDE
     Indication: NERVOUSNESS
     Dosage: 20 MG, 1X/DAY
     Route: 048

REACTIONS (3)
  - Ulcer haemorrhage [Unknown]
  - Intentional product misuse [Unknown]
  - Intentional product use issue [Unknown]
